FAERS Safety Report 22310254 (Version 1)
Quarter: 2023Q2

REPORT INFORMATION
  Report Type: Spontaneous
  Country: US (occurrence: US)
  Receive Date: 20230511
  Receipt Date: 20230511
  Transmission Date: 20230722
  Serious: No
  Sender: FDA-Public Use
  Company Number: US-TEVA-2023-US-2882654

PATIENT
  Age: 31 Year
  Sex: Male

DRUGS (5)
  1. CLONAZEPAM [Suspect]
     Active Substance: CLONAZEPAM
     Indication: Social anxiety disorder
     Dosage: 3 MILLIGRAM DAILY; 1 MG
     Dates: start: 2020
  2. CLONAZEPAM [Suspect]
     Active Substance: CLONAZEPAM
     Indication: Restless legs syndrome
  3. CLONAZEPAM [Suspect]
     Active Substance: CLONAZEPAM
     Indication: Panic disorder
  4. CLONAZEPAM [Suspect]
     Active Substance: CLONAZEPAM
     Indication: Insomnia
  5. CLONAZEPAM [Suspect]
     Active Substance: CLONAZEPAM
     Indication: Anxiety

REACTIONS (10)
  - Skin mass [Unknown]
  - Oropharyngeal pain [Unknown]
  - Adverse event [Unknown]
  - Sinusitis [Unknown]
  - Hypersensitivity [Unknown]
  - Drug ineffective [Unknown]
  - Product prescribing issue [Unknown]
  - Product quality issue [Unknown]
  - Product physical issue [Unknown]
  - Poor quality product administered [Unknown]

NARRATIVE: CASE EVENT DATE: 20200101
